FAERS Safety Report 8437405-8 (Version None)
Quarter: 2012Q2

REPORT INFORMATION
  Report Type: 
  Country: None (occurrence: None)
  Receive Date: 20120614
  Receipt Date: 20120322
  Transmission Date: 20120825
  Serious: No
  Sender: FDA-Public Use
  Company Number: US-AMGEN-USASP2012018500

PATIENT
  Age: 67 Year
  Sex: Female

DRUGS (7)
  1. ZETIA [Concomitant]
  2. VITAMIN TAB [Concomitant]
  3. ASPIRIN [Concomitant]
  4. CADUET [Concomitant]
  5. METFORMIN HCL [Concomitant]
  6. TEKTURNA [Concomitant]
  7. PROLIA [Suspect]
     Indication: OSTEOPOROSIS POSTMENOPAUSAL
     Dosage: UNK UNK, Q6MO
     Dates: start: 20120217

REACTIONS (1)
  - PAIN IN JAW [None]
